FAERS Safety Report 16857881 (Version 1)
Quarter: 2019Q3

REPORT INFORMATION
  Report Type: Report from Study
  Country: None (occurrence: IT)
  Receive Date: 20190926
  Receipt Date: 20190926
  Transmission Date: 20191005
  Serious: Yes (Death, Other)
  Sender: FDA-Public Use
  Company Number: IT-ABBVIE-19K-083-2941200-00

PATIENT
  Age: 76 Year
  Sex: Male

DRUGS (1)
  1. DUODOPA [Suspect]
     Active Substance: CARBIDOPA\LEVODOPA
     Indication: PARKINSON^S DISEASE
     Dosage: MD 7(+3)?CR 2,8?ED 2,2?20 MG/ML 5 MG/ML
     Route: 050
     Dates: start: 20081201, end: 20190920

REACTIONS (2)
  - Respiratory failure [Fatal]
  - Femur fracture [Fatal]

NARRATIVE: CASE EVENT DATE: 201909
